FAERS Safety Report 4974925-2 (Version None)
Quarter: 2006Q2

REPORT INFORMATION
  Report Type: 
  Country: None (occurrence: None)
  Receive Date: 20060418
  Receipt Date: 20060328
  Transmission Date: 20061013
  Serious: Yes (Hospitalization)
  Sender: FDA-Public Use
  Company Number: GB-SOLVAY-00206001120

PATIENT
  Age: 30167 Day
  Sex: Male
  Weight: 67 kg

DRUGS (12)
  1. COVERSYL [Suspect]
     Indication: HYPERTENSION
     Dosage: DAILY DOSE: 8 MILLIGRAM(S)
     Route: 048
     Dates: start: 20021213, end: 20060322
  2. COVERSYL [Suspect]
     Dosage: DAILY DOSE: 4 MILLIGRAM(S)
     Route: 048
     Dates: start: 20060323
  3. DIAMICRON MR [Concomitant]
     Indication: ILL-DEFINED DISORDER
     Dosage: DAILY DOSE: 30 MILLIGRAM(S)
     Route: 048
     Dates: start: 20020320
  4. FUROSIDE [Concomitant]
     Indication: ILL-DEFINED DISORDER
     Dosage: DAILY DOSE:  UNKNOWN
     Route: 065
  5. BLINDED THERAPY (PERINDOPRIL/INDAPAMIDE VS PLACEBO) [Suspect]
     Indication: PROPHYLAXIS
     Dosage: DAILY DOSE: 2 DOSAGE FORM
     Route: 048
     Dates: start: 20020320, end: 20050425
  6. AMILORIDE HYDROCHLORIDE [Suspect]
     Indication: ILL-DEFINED DISORDER
     Dosage: DAILY DOSE: 5 MILLIGRAM(S)
     Route: 048
     Dates: end: 20060322
  7. OMEPRAZOLE [Concomitant]
     Indication: ILL-DEFINED DISORDER
     Dosage: DAILY DOSE:  UNKNOWN
     Route: 065
     Dates: start: 20020101
  8. METFORMIN [Suspect]
     Indication: ILL-DEFINED DISORDER
     Dosage: DAILY DOSE:  UNKNOWN
     Route: 048
     Dates: end: 20060322
  9. SALBUTAMOL [Concomitant]
     Indication: ILL-DEFINED DISORDER
     Dosage: DAILY DOSE:  UNKNOWN
     Route: 065
     Dates: start: 20020101
  10. SERETIDE [Concomitant]
     Indication: ILL-DEFINED DISORDER
     Dosage: DAILY DOSE:  UNKNOWN
     Route: 065
     Dates: start: 20040101
  11. TIOTROPIUM [Concomitant]
     Indication: ILL-DEFINED DISORDER
     Dosage: DAILY DOSE:  UNKNOWN
     Route: 065
     Dates: start: 20040101
  12. MEBEVERINE [Concomitant]
     Indication: ILL-DEFINED DISORDER
     Dosage: DAILY DOSE:  UNKNOWN
     Route: 065
     Dates: start: 20020101

REACTIONS (3)
  - ACIDOSIS [None]
  - ELECTROCARDIOGRAM CHANGE [None]
  - HYPERKALAEMIA [None]
